FAERS Safety Report 6473714-X (Version None)
Quarter: 2009Q4

REPORT INFORMATION
  Report Type: 
  Country: None (occurrence: None)
  Receive Date: 20091204
  Receipt Date: 20091130
  Transmission Date: 20100525
  Serious: Yes (Other)
  Sender: FDA-Public Use
  Company Number: US-WYE-H08690509

PATIENT
  Sex: Female

DRUGS (5)
  1. PREMARIN [Suspect]
  2. CYCRIN [Suspect]
  3. ESTROPIPATE [Suspect]
  4. PROVERA [Suspect]
  5. ACTIVELLA [Suspect]

REACTIONS (3)
  - BREAST CANCER METASTATIC [None]
  - RAYNAUD'S PHENOMENON [None]
  - SCLERODERMA [None]
